FAERS Safety Report 13905749 (Version 6)
Quarter: 2018Q1

REPORT INFORMATION
  Report Type: Spontaneous
  Country: US (occurrence: US)
  Receive Date: 20170825
  Receipt Date: 20180105
  Transmission Date: 20180508
  Serious: Yes (Hospitalization, Other)
  Sender: FDA-Public Use
  Company Number: US-GLAXOSMITHKLINE-US2017GSK131717

PATIENT
  Age: 73 Year
  Sex: Female

DRUGS (2)
  1. ANORO ELLIPTA [Suspect]
     Active Substance: UMECLIDINIUM BROMIDE\VILANTEROL TRIFENATATE
     Indication: CHRONIC OBSTRUCTIVE PULMONARY DISEASE
     Dosage: 1 PUFF(S), QD
     Route: 055
     Dates: start: 2014
  2. VENTOLIN [Suspect]
     Active Substance: ALBUTEROL SULFATE
     Indication: CHRONIC OBSTRUCTIVE PULMONARY DISEASE
     Dosage: 2 PUFF(S), PRN
     Route: 055
     Dates: start: 2011

REACTIONS (17)
  - Bone disorder [Unknown]
  - Bladder disorder [Recovering/Resolving]
  - Fall [Recovering/Resolving]
  - Intervertebral disc disorder [Unknown]
  - Spinal disorder [Unknown]
  - Pelvic fracture [Recovering/Resolving]
  - Upper limb fracture [Recovering/Resolving]
  - Dry eye [Not Recovered/Not Resolved]
  - Cardiac disorder [Unknown]
  - Pulmonary mass [Unknown]
  - Neoplasm malignant [Unknown]
  - Upper limb fracture [Unknown]
  - Visual impairment [Not Recovered/Not Resolved]
  - Movement disorder [Recovering/Resolving]
  - Gait disturbance [Unknown]
  - Spinal column stenosis [Unknown]
  - Lung neoplasm malignant [Unknown]

NARRATIVE: CASE EVENT DATE: 201703
